FAERS Safety Report 13439773 (Version 2)
Quarter: 2017Q2

REPORT INFORMATION
  Report Type: Spontaneous
  Country: FR (occurrence: FR)
  Receive Date: 20170413
  Receipt Date: 20170612
  Transmission Date: 20170830
  Serious: Yes (Death)
  Sender: FDA-Public Use
  Company Number: FR-MYLANLABS-2017M1022250

PATIENT

DRUGS (11)
  1. RISPERIDONE MYLAN 3 MG, COMPRIM? ORODISPERSIBLE [Suspect]
     Active Substance: RISPERIDONE
     Indication: PSYCHOTIC DISORDER
     Dosage: 3 MG, QD
     Route: 048
     Dates: start: 20140219
  2. PARKINANE LP [Suspect]
     Active Substance: TRIHEXYPHENIDYL HYDROCHLORIDE
     Indication: PARKINSONISM
     Dosage: 1 DF, BID
     Route: 048
     Dates: start: 201301
  3. PAROXETINE ARROW [Suspect]
     Active Substance: PAROXETINE
     Indication: DEPRESSION
  4. LASILIX [Suspect]
     Active Substance: FUROSEMIDE
     Indication: OEDEMA
     Dosage: 0.5 UNK, QD
     Route: 048
  5. PAROXETINE ARROW [Suspect]
     Active Substance: PAROXETINE
     Indication: ANXIETY
     Dosage: 20 MG, TID
     Route: 048
  6. DOGMATIL SANS SUCRE 0.5 G/100 ML [Suspect]
     Active Substance: SULPIRIDE
     Indication: PSYCHOTIC DISORDER
     Dosage: 5 ML, TID
     Route: 048
     Dates: start: 201301
  7. ALPRAZOLAM MYLAN 0.25 MG, COMPRIM? S?CABLE [Suspect]
     Active Substance: ALPRAZOLAM
     Indication: PSYCHIATRIC SYMPTOM
     Dosage: 2.5 DF, QD
  8. EXACYL [Suspect]
     Active Substance: TRANEXAMIC ACID
     Indication: PRODUCT USED FOR UNKNOWN INDICATION
     Dosage: UNK, PRN, AS NEEDED
     Route: 048
  9. DUPHASTON [Suspect]
     Active Substance: DYDROGESTERONE
     Indication: PRODUCT USED FOR UNKNOWN INDICATION
     Dosage: 10 DF, MONTHLY
     Route: 048
  10. MOVICOL [Suspect]
     Active Substance: POLYETHYLENE GLYCOL 3350\POTASSIUM CHLORIDE\SODIUM BICARBONATE\SODIUM CHLORIDE
     Indication: CONSTIPATION
     Dosage: 1 DF, QD
     Route: 048
  11. THERALENE 4 POUR CENT [Suspect]
     Active Substance: TRIMEPRAZINE
     Indication: PSYCHIATRIC SYMPTOM
     Dosage: 15 DF, QD
     Route: 048

REACTIONS (3)
  - Hypopnoea [Fatal]
  - Hypotension [Fatal]
  - Oxygen saturation decreased [Fatal]

NARRATIVE: CASE EVENT DATE: 20170320
